FAERS Safety Report 19063673 (Version 1)
Quarter: 2021Q1

REPORT INFORMATION
  Report Type: Report from Study
  Country: CA (occurrence: CA)
  Receive Date: 20210326
  Receipt Date: 20210326
  Transmission Date: 20210420
  Serious: Yes (Hospitalization, Other)
  Sender: FDA-Public Use
  Company Number: CA-PFIZER INC-2021318095

PATIENT
  Age: 41 Year
  Sex: Female

DRUGS (12)
  1. METHOTREXATE SODIUM. [Suspect]
     Active Substance: METHOTREXATE SODIUM
     Dosage: 25 MG, WEEKLY
     Route: 058
  2. METHOTREXATE. [Concomitant]
     Active Substance: METHOTREXATE
     Route: 065
  3. HYDROXYCHLOROQUINE [Concomitant]
     Active Substance: HYDROXYCHLOROQUINE
     Dosage: UNK, 1X/DAY
     Route: 048
  4. CELECOXIB. [Suspect]
     Active Substance: CELECOXIB
     Dosage: 200 MG, 1X/DAY
     Route: 048
  5. ACETAMINOPHEN;BUTALBITAL [Concomitant]
     Active Substance: ACETAMINOPHEN\BUTALBITAL
     Dosage: 2 DF, 4X/DAY
     Route: 048
  6. FERROUS FUMARATE [Concomitant]
     Active Substance: FERROUS FUMARATE
     Dosage: 1 DF, 1X/DAY
     Route: 048
  7. DICLOFENAC [Suspect]
     Active Substance: DICLOFENAC
     Dosage: UNK, 3X/DAY
     Route: 061
  8. SULFASALAZINE. [Concomitant]
     Active Substance: SULFASALAZINE
     Route: 065
  9. HUMIRA [Concomitant]
     Active Substance: ADALIMUMAB
     Route: 065
  10. IBUPROFEN AND PSEUDOEPHEDRINE HYDROCHLORIDE [Concomitant]
     Active Substance: IBUPROFEN\PSEUDOEPHEDRINE HYDROCHLORIDE
     Route: 048
  11. NAPROXEN. [Concomitant]
     Active Substance: NAPROXEN
     Dosage: 2 DF, 2X/DAY
     Route: 048
  12. ACETAZOLAMIDE SODIUM. [Concomitant]
     Active Substance: ACETAZOLAMIDE SODIUM
     Dosage: 1 DF, 3X/DAY
     Route: 048

REACTIONS (3)
  - Drug intolerance [Unknown]
  - Circumoral oedema [Unknown]
  - Axillary mass [Unknown]
